FAERS Safety Report 25543689 (Version 1)
Quarter: 2025Q3

REPORT INFORMATION
  Report Type: Spontaneous
  Country: US (occurrence: US)
  Receive Date: 20250711
  Receipt Date: 20250711
  Transmission Date: 20251020
  Serious: No
  Sender: AMGEN
  Company Number: US-AMGEN-USASP2025133841

PATIENT
  Sex: Female

DRUGS (32)
  1. OTEZLA [Suspect]
     Active Substance: APREMILAST
     Indication: Psoriatic arthropathy
     Dosage: 30 MILLIGRAM, BID
     Route: 048
     Dates: start: 20210415
  2. ACYCLOVIR [Concomitant]
     Active Substance: ACYCLOVIR
  3. AMOXICILLIN [Concomitant]
     Active Substance: AMOXICILLIN
  4. ASPIRIN [Concomitant]
     Active Substance: ASPIRIN
  5. ATORVASTATIN [Concomitant]
     Active Substance: ATORVASTATIN
  6. ATORVASTATIN [Concomitant]
     Active Substance: ATORVASTATIN
  7. AZITHROMYCIN [Concomitant]
     Active Substance: AZITHROMYCIN
  8. CALCIPOTRIENE [Concomitant]
     Active Substance: CALCIPOTRIENE
  9. DIPHENHYDRAMINE [Concomitant]
     Active Substance: DIPHENHYDRAMINE
  10. FOLIC ACID [Concomitant]
     Active Substance: FOLIC ACID
  11. HUMIRA [Concomitant]
     Active Substance: ADALIMUMAB
  12. MAGNESIUM OXIDE [Concomitant]
     Active Substance: MAGNESIUM OXIDE
  13. METHOTREXATE [Concomitant]
     Active Substance: METHOTREXATE
  14. METHOTREXATE [Concomitant]
     Active Substance: METHOTREXATE
  15. METHOTREXATE [Concomitant]
     Active Substance: METHOTREXATE
  16. MOUNJARO [Concomitant]
     Active Substance: TIRZEPATIDE
  17. MOUNJARO [Concomitant]
     Active Substance: TIRZEPATIDE
  18. MOUNJARO [Concomitant]
     Active Substance: TIRZEPATIDE
  19. NAPROXEN [Concomitant]
     Active Substance: NAPROXEN
  20. NORTRIPTYLINE [Concomitant]
     Active Substance: NORTRIPTYLINE
  21. NURTEC ODT [Concomitant]
     Active Substance: RIMEGEPANT SULFATE
  22. ONDANSETRON [Concomitant]
     Active Substance: ONDANSETRON
  23. OXYCODONE [Concomitant]
     Active Substance: OXYCODONE
  24. SERTRALINE [Concomitant]
     Active Substance: SERTRALINE HYDROCHLORIDE
  25. SHINGRIX [Concomitant]
     Active Substance: RECOMBINANT VARICELLA ZOSTER VIRUS (VZV) GLYCOPROTEIN E
  26. SODIUM CHLORIDE [Concomitant]
     Active Substance: SODIUM CHLORIDE
  27. TREMFYA [Concomitant]
     Active Substance: GUSELKUMAB
  28. VALACYCLOVIR [Concomitant]
     Active Substance: VALACYCLOVIR HYDROCHLORIDE
  29. VITAMIN A [Concomitant]
     Active Substance: VITAMIN A
  30. VITAMIN C [Concomitant]
     Active Substance: ASCORBIC ACID
  31. VITAMIN D3 [Concomitant]
     Active Substance: CHOLECALCIFEROL
  32. ZESTRIL [Concomitant]
     Active Substance: LISINOPRIL

REACTIONS (3)
  - Nausea [Unknown]
  - Vomiting [Unknown]
  - Product dose omission issue [Unknown]
